FAERS Safety Report 9536199 (Version 1)
Quarter: 2013Q3

REPORT INFORMATION
  Report Type: Spontaneous
  Country: US (occurrence: None)
  Receive Date: 20130917
  Receipt Date: 20130917
  Transmission Date: 20140515
  Serious: No
  Sender: FDA-Public Use
  Company Number: None

PATIENT
  Age: 83 Year
  Sex: Female
  Weight: 88.45 kg

DRUGS (9)
  1. PLAVIX [Suspect]
     Indication: ARRHYTHMIA
     Route: 048
     Dates: start: 20090217, end: 20090219
  2. DILTIAZEM [Concomitant]
  3. WARFARIN [Concomitant]
  4. METROPOLOL [Concomitant]
  5. CALCIUM [Concomitant]
  6. VIT D [Concomitant]
  7. GLUCOSAMINE [Concomitant]
  8. BIOTIN [Concomitant]
  9. FISH OIL [Concomitant]

REACTIONS (3)
  - Skin exfoliation [None]
  - Palmar erythema [None]
  - Pruritus [None]
